FAERS Safety Report 20760846 (Version 1)
Quarter: 2022Q2

REPORT INFORMATION
  Report Type: Spontaneous
  Country: US (occurrence: US)
  Receive Date: 20220428
  Receipt Date: 20220428
  Transmission Date: 20220721
  Serious: No
  Sender: FDA-Public Use
  Company Number: US-Calliditas-2022CAL00053

PATIENT
  Age: 48 Year
  Sex: Female

DRUGS (2)
  1. TARPEYO [Suspect]
     Active Substance: BUDESONIDE
     Indication: Haematuria
     Dosage: 16MG ONCE DAILY. SHE WAS DOWN TO 2 A DAY BRIEFLY, IS NOW BACK TO 4.
     Route: 050
     Dates: start: 20220305
  2. TARPEYO [Suspect]
     Active Substance: BUDESONIDE
     Indication: Haematuria
     Dosage: 8MG ONCE DAILY. SHE WAS DOWN TO 2 A DAY BRIEFLY, IS NOW BACK TO 4.
     Route: 050
     Dates: start: 20220305

REACTIONS (3)
  - Blood pressure increased [Unknown]
  - Hot flush [Unknown]
  - Heart rate increased [Unknown]
